FAERS Safety Report 8095847-7 (Version None)
Quarter: 2012Q1

REPORT INFORMATION
  Report Type: 
  Country: None (occurrence: None)
  Receive Date: 20120129
  Receipt Date: 20111227
  Transmission Date: 20120608
  Serious: No
  Sender: FDA-Public Use
  Company Number: US-ABBOTT-11P-163-0886507-00

PATIENT
  Sex: Male
  Weight: 88.53 kg

DRUGS (2)
  1. HUMIRA [Suspect]
     Indication: PSORIASIS
     Dates: end: 20110801
  2. HUMIRA [Suspect]
     Route: 058
     Dates: start: 20111207

REACTIONS (1)
  - DRUG INEFFECTIVE [None]
